FAERS Safety Report 5054033-5 (Version None)
Quarter: 2006Q3

REPORT INFORMATION
  Report Type: 
  Country: None (occurrence: None)
  Receive Date: 20060713
  Receipt Date: 20060704
  Transmission Date: 20061208
  Serious: Yes (Hospitalization)
  Sender: FDA-Public Use
  Company Number: 2006-06-1641

PATIENT
  Age: 57 Year
  Sex: Male

DRUGS (9)
  1. PEG-INTRON [Suspect]
     Indication: HEPATITIS C
     Dosage: SEE IMAGE
     Route: 058
     Dates: start: 20060118, end: 20060118
  2. PEG-INTRON [Suspect]
     Indication: HEPATITIS C
     Dosage: SEE IMAGE
     Route: 058
     Dates: start: 20060125, end: 20060323
  3. REBETOL [Suspect]
     Indication: HEPATITIS C
     Dosage: SEE IMAGE
     Route: 048
     Dates: start: 20060118, end: 20060124
  4. REBETOL [Suspect]
     Indication: HEPATITIS C
     Dosage: SEE IMAGE
     Route: 048
     Dates: start: 20060125, end: 20060323
  5. ALTAT [Concomitant]
  6. PROMAC (POLAPREZINC) [Concomitant]
  7. PURSENNID [Concomitant]
  8. LOXONIN [Concomitant]
  9. LENDORMIN [Concomitant]

REACTIONS (2)
  - CONSTIPATION [None]
  - ILEUS [None]
